FAERS Safety Report 24566520 (Version 1)
Quarter: 2024Q4

REPORT INFORMATION
  Report Type: Spontaneous
  Country: DE (occurrence: DE)
  Receive Date: 20241030
  Receipt Date: 20241030
  Transmission Date: 20250115
  Serious: Yes (Hospitalization, Other)
  Sender: BIOVITRUM
  Company Number: DE-BIOVITRUM-2024-DE-013840

PATIENT
  Sex: Female

DRUGS (2)
  1. DOPTELET [Suspect]
     Active Substance: AVATROMBOPAG MALEATE
     Indication: Product used for unknown indication
     Dosage: 20 MG PER DAY
     Route: 048
     Dates: start: 202302
  2. DOPTELET [Suspect]
     Active Substance: AVATROMBOPAG MALEATE
     Dosage: THEREAFTER 40 MG PER DAY
     Route: 048

REACTIONS (4)
  - Thrombocytopenia [Unknown]
  - Rectal haemorrhage [Unknown]
  - Platelet count abnormal [Unknown]
  - Vaginal haemorrhage [Unknown]

NARRATIVE: CASE EVENT DATE: 20240801
